FAERS Safety Report 8440607-8 (Version None)
Quarter: 2012Q2

REPORT INFORMATION
  Report Type: 
  Country: None (occurrence: None)
  Receive Date: 20120615
  Receipt Date: 20120606
  Transmission Date: 20120825
  Serious: Yes (Other)
  Sender: FDA-Public Use
  Company Number: US-ASTRAZENECA-2012SE38039

PATIENT
  Age: 68 Year
  Sex: Female
  Weight: 64 kg

DRUGS (4)
  1. ANASTROZOLE [Suspect]
     Indication: BREAST CANCER
     Dosage: GENERIC
     Route: 048
     Dates: start: 20101201, end: 20120528
  2. VITAMIN TAB [Concomitant]
  3. BUTALBITAL [Concomitant]
     Indication: MIGRAINE
  4. CLONAZEPAM [Concomitant]
     Indication: ANXIETY

REACTIONS (12)
  - WEIGHT INCREASED [None]
  - FATIGUE [None]
  - MALAISE [None]
  - ANXIETY [None]
  - MUSCULAR WEAKNESS [None]
  - NEUROPATHY PERIPHERAL [None]
  - BLINDNESS [None]
  - SENSATION OF HEAVINESS [None]
  - DEPRESSION [None]
  - PARAESTHESIA [None]
  - TREMOR [None]
  - ARRHYTHMIA [None]
